FAERS Safety Report 7607047-2 (Version None)
Quarter: 2011Q3

REPORT INFORMATION
  Report Type: 
  Country: None (occurrence: None)
  Receive Date: 20110712
  Receipt Date: 20110712
  Transmission Date: 20111222
  Serious: Yes (Hospitalization)
  Sender: FDA-Public Use
  Company Number: None

PATIENT
  Age: 86 Year
  Sex: Male
  Weight: 84.36 kg

DRUGS (1)
  1. FUROSEMIDE [Suspect]
     Dosage: 40 MG EVERY DAY PO
     Route: 048
     Dates: end: 20100601

REACTIONS (1)
  - HYPERURICAEMIA [None]
